FAERS Safety Report 25874807 (Version 1)
Quarter: 2025Q4

REPORT INFORMATION
  Report Type: Spontaneous
  Country: US (occurrence: US)
  Receive Date: 20251002
  Receipt Date: 20251002
  Transmission Date: 20260117
  Serious: Yes (Other)
  Sender: GALPHARM INTERNATIONAL
  Company Number: US-MLMSERVICE-20250917-PI648719-00030-1

PATIENT
  Age: 24 Year
  Sex: Female

DRUGS (4)
  1. IBUPROFEN [Suspect]
     Active Substance: IBUPROFEN
     Indication: Back pain
     Dosage: UNKNOWN, UNKNOWN
     Route: 048
     Dates: start: 202212, end: 202301
  2. IBUPROFEN [Suspect]
     Active Substance: IBUPROFEN
     Indication: Flank pain
  3. ACETAMINOPHEN [Concomitant]
     Active Substance: ACETAMINOPHEN
     Indication: Back pain
     Dosage: UNKNOWN, UNKNOWN
     Route: 065
     Dates: start: 202212
  4. ACETAMINOPHEN [Concomitant]
     Active Substance: ACETAMINOPHEN
     Indication: Flank pain

REACTIONS (1)
  - Renal papillary necrosis [Unknown]
